FAERS Safety Report 9244682 (Version 3)
Quarter: 2013Q4

REPORT INFORMATION
  Report Type: Spontaneous
  Country: GB (occurrence: GB)
  Receive Date: 20130422
  Receipt Date: 20131112
  Transmission Date: 20140711
  Serious: Yes (Disabling, Other)
  Sender: FDA-Public Use
  Company Number: GB-ACCORD-017250

PATIENT
  Age: 64 Year
  Sex: Male
  Weight: 86 kg

DRUGS (5)
  1. OMEPRAZOLE [Concomitant]
     Dates: start: 20121220
  2. PROCHLORPERAZINE [Concomitant]
     Dates: start: 20130108, end: 20130115
  3. FINASTERIDE [Suspect]
     Indication: PRODUCT USED FOR UNKNOWN INDICATION
     Route: 065
     Dates: start: 20130130
  4. DUTASTERIDE [Concomitant]
     Dosage: DUTASTERIDE 500
     Dates: start: 20121220, end: 20130119
  5. DICLOFENAC SODIUM [Interacting]
     Indication: BACK PAIN
     Route: 065
     Dates: start: 20121220

REACTIONS (2)
  - Drug interaction [Recovered/Resolved]
  - Back pain [Recovered/Resolved]
